FAERS Safety Report 21850114 (Version 1)
Quarter: 2023Q1

REPORT INFORMATION
  Report Type: Report from Study
  Country: US (occurrence: US)
  Receive Date: 20230111
  Receipt Date: 20230111
  Transmission Date: 20230418
  Serious: No
  Sender: FDA-Public Use
  Company Number: US-ABBVIE-4225847

PATIENT
  Sex: Female

DRUGS (15)
  1. RINVOQ [Suspect]
     Active Substance: UPADACITINIB
     Indication: Rheumatoid arthritis
     Route: 048
     Dates: start: 20220902
  2. ASPIRIN 325 MG TABLET [Concomitant]
     Indication: Product used for unknown indication
  3. LEVOCETIRIZINE DIHYDROCHLORIDE [Concomitant]
     Active Substance: LEVOCETIRIZINE DIHYDROCHLORIDE
     Indication: Product used for unknown indication
  4. EPINEPHRINE 0.15MG/0.3 AUTO INJCT [Concomitant]
     Indication: Product used for unknown indication
  5. ARAVA 10 MG TABLET [Concomitant]
     Indication: Product used for unknown indication
     Dosage: 10 MG TABLET
  6. ADVIL 200 MG CAPSULE [Concomitant]
     Indication: Product used for unknown indication
  7. AZELASTINE HYDROCHLORIDE\FLUTICASONE PROPIONATE [Concomitant]
     Active Substance: AZELASTINE HYDROCHLORIDE\FLUTICASONE PROPIONATE
     Indication: Product used for unknown indication
  8. GLUCAGON EMERGENCY KIT 1 MG VIAL [Concomitant]
     Indication: Product used for unknown indication
  9. CYCLOBENZAPRINE HCL 7.5 MG TABLET [Concomitant]
     Indication: Product used for unknown indication
  10. BIOTIN 2500 MCG CAPSULE [Concomitant]
     Indication: Product used for unknown indication
  11. NASONEX 50 MCG SPRAY/PUMP [Concomitant]
     Indication: Product used for unknown indication
  12. SINGULAIR [Concomitant]
     Active Substance: MONTELUKAST SODIUM
     Indication: Product used for unknown indication
  13. HUMALOG 100/ML UNITS [Concomitant]
     Indication: Product used for unknown indication
  14. CEFDINIR [Concomitant]
     Active Substance: CEFDINIR
     Indication: Product used for unknown indication
  15. FUROSEMIDE [Concomitant]
     Active Substance: FUROSEMIDE
     Indication: Product used for unknown indication

REACTIONS (3)
  - Arthralgia [Unknown]
  - Therapeutic product effect incomplete [Unknown]
  - Joint noise [Unknown]
